FAERS Safety Report 16665142 (Version 1)
Quarter: 2019Q3

REPORT INFORMATION
  Report Type: Spontaneous
  Country: DE (occurrence: DE)
  Receive Date: 20190803
  Receipt Date: 20190803
  Transmission Date: 20191004
  Serious: Yes (Other)
  Sender: FDA-Public Use
  Company Number: DE-AUROBINDO-AUR-APL-2019-045023

PATIENT

DRUGS (22)
  1. PULMOZYME [Concomitant]
     Active Substance: DORNASE ALFA
     Indication: CYSTIC FIBROSIS
     Dosage: 1 DOSAGE FORM, DAILY (1 DF, 1X/DAY
     Route: 055
     Dates: start: 20150315
  2. CEFTAZIDIME. [Concomitant]
     Active Substance: CEFTAZIDIME
     Indication: CYSTIC FIBROSIS
     Dosage: 4500 MILLIGRAM, DAILY (1500 MG, 3X/DAY)
     Route: 042
     Dates: start: 20190131, end: 20190204
  3. COTRIMOXAZOL [Concomitant]
     Active Substance: SULFAMETHOXAZOLE\TRIMETHOPRIM
     Indication: CYSTIC FIBROSIS
     Dosage: 960 MILLIGRAM, DAILY (480 MG, 2X/DAY)
     Route: 048
     Dates: start: 20190131
  4. KREON [Concomitant]
     Active Substance: PANCRELIPASE
     Indication: PANCREATIC DISORDER
     Dosage: UNK (PERMANENT USE AS NEEDED)
     Route: 048
     Dates: start: 20131121
  5. PARACETAMOL [Concomitant]
     Active Substance: ACETAMINOPHEN
     Indication: PAIN
     Dosage: UNK
     Route: 065
  6. TOBRAMYCIN. [Concomitant]
     Active Substance: TOBRAMYCIN
     Indication: CYSTIC FIBROSIS
     Dosage: 340 MILLIGRAM, DAILY (170 MG, 2X/DAY)
     Route: 055
     Dates: start: 20180605
  7. TOCOPHEROL [Concomitant]
     Active Substance: TOCOPHEROL
     Indication: PANCREATIC DISORDER
     Dosage: UNK (PERMANENT USE AS NEEDED)
     Route: 048
     Dates: start: 20131121
  8. URSOFALK [Concomitant]
     Active Substance: URSODIOL
     Indication: LIVER DISORDER
     Dosage: 2 DOSAGE FORM, DAILY 1 DF, 2X/DAY
     Route: 048
     Dates: start: 20131121
  9. MEROPENEM. [Suspect]
     Active Substance: MEROPENEM
     Indication: CYSTIC FIBROSIS
     Dosage: 800 MILLIGRAM, DAILY (800 MG, 1X/DAY)
     Route: 042
     Dates: start: 20190205, end: 20190205
  10. ATROVENT [Concomitant]
     Active Substance: IPRATROPIUM BROMIDE
     Indication: CYSTIC FIBROSIS
     Dosage: 20 DOSAGE FORM, DAILY (10 DF, 2X/DAY
     Route: 055
     Dates: start: 20140325
  11. CIPROFLOXACIN. [Concomitant]
     Active Substance: CIPROFLOXACIN
     Indication: PRODUCTIVE COUGH
     Dosage: UNK
     Route: 065
  12. RETINOL [Concomitant]
     Active Substance: RETINOL
     Indication: PANCREATIC DISORDER
     Dosage: UNK (UNK (PERMANENT USE AS NEEDED)
     Route: 048
     Dates: start: 20131121
  13. ERGOCALCIFEROL. [Concomitant]
     Active Substance: ERGOCALCIFEROL
     Indication: PANCREATIC DISORDER
     Dosage: UNK (PERMANENT USE AS NEEDED)
     Route: 048
     Dates: start: 20131121
  14. MUCOCLEAR [Concomitant]
     Indication: CYSTIC FIBROSIS
     Dosage: 8 DOSAGE FORM, DAILY (4 DF, 2X/DAY
     Route: 055
     Dates: start: 20150315
  15. PHYTOMENADIONE [Concomitant]
     Active Substance: PHYTONADIONE
     Indication: PANCREATIC DISORDER
     Dosage: UNK (PERMANENT USE AS NEEDED)
     Route: 048
     Dates: start: 20131121
  16. INFECTOFOS [Suspect]
     Active Substance: FOSFOMYCIN SODIUM
     Indication: CYSTIC FIBROSIS
     Dosage: 4500 MILLIGRAM, DAILY (1500 MG, 3X/DAY)
     Route: 042
     Dates: start: 20190131, end: 20190206
  17. SALBUTAMOL [Concomitant]
     Active Substance: ALBUTEROL
     Indication: CYSTIC FIBROSIS
     Dosage: 8 DOSAGE FORM, DAILY (4 DF, 2X/DAY )
     Route: 055
     Dates: start: 20140325
  18. CIPROFLOXACIN. [Concomitant]
     Active Substance: CIPROFLOXACIN
     Indication: PYREXIA
     Dosage: 700 MILLIGRAM, DAILY (350 MG, 2X/DAY )
     Route: 048
     Dates: start: 20190128, end: 20190130
  19. CLEMASTINE [Concomitant]
     Active Substance: CLEMASTINE
     Indication: HYPERSENSITIVITY
     Dosage: UNK
     Route: 042
     Dates: start: 20190204, end: 20190206
  20. PARACETAMOL [Concomitant]
     Active Substance: ACETAMINOPHEN
     Indication: PYREXIA
     Dosage: 350 MG, UNK (USE IF NECESSARY)
     Route: 048
     Dates: start: 20190201, end: 20190228
  21. CAYSTON [Concomitant]
     Active Substance: AZTREONAM
     Indication: CYSTIC FIBROSIS
     Dosage: 225 MILLIGRAM, DAILY (75 MG, 3X/DAY)
     Route: 048
     Dates: start: 20161026, end: 20190130
  22. IBUPROFEN. [Concomitant]
     Active Substance: IBUPROFEN
     Indication: PRODUCT USED FOR UNKNOWN INDICATION
     Dosage: 600 MILLIGRAM, DAILY (200 MG, 3X/DAY  )
     Route: 048
     Dates: start: 20190202, end: 20190228

REACTIONS (7)
  - Pyrexia [Recovered/Resolved]
  - Rash generalised [Recovered/Resolved]
  - Headache [Recovered/Resolved]
  - Hypotension [Recovered/Resolved]
  - Visual impairment [Recovered/Resolved]
  - Erythema [Recovered/Resolved]
  - Petechiae [Recovered/Resolved]

NARRATIVE: CASE EVENT DATE: 20190204
